FAERS Safety Report 9839094 (Version 3)
Quarter: 2014Q1

REPORT INFORMATION
  Report Type: Spontaneous
  Country: CA (occurrence: CA)
  Receive Date: 20140123
  Receipt Date: 20140305
  Transmission Date: 20141002
  Serious: Yes (Hospitalization)
  Sender: FDA-Public Use
  Company Number: CA-GILEAD-2013-0090368

PATIENT
  Age: 78 Year
  Sex: Female

DRUGS (11)
  1. AMBRISENTAN [Suspect]
     Indication: PULMONARY ARTERIAL HYPERTENSION
     Dosage: 5MG UNKNOWN
     Route: 065
     Dates: start: 20131122
  2. VITAMIN D NOS [Concomitant]
  3. VITAMIN C                          /00008001/ [Concomitant]
  4. FUROSEMIDE [Concomitant]
  5. METOPROLOL                         /00376902/ [Concomitant]
  6. SYNTHROID [Concomitant]
  7. DILANTIN                           /00017401/ [Concomitant]
  8. FERROUS GLUCONATE [Concomitant]
  9. ZYLOPRIM [Concomitant]
  10. XARELTO [Concomitant]
  11. NOVO-GESIC [Concomitant]

REACTIONS (6)
  - Chest pain [Recovering/Resolving]
  - Dyspnoea [Not Recovered/Not Resolved]
  - Oedema peripheral [Not Recovered/Not Resolved]
  - Diarrhoea [Not Recovered/Not Resolved]
  - Nausea [Not Recovered/Not Resolved]
  - Dizziness [Not Recovered/Not Resolved]
